FAERS Safety Report 6092509-2 (Version None)
Quarter: 2009Q1

REPORT INFORMATION
  Report Type: 
  Country: None (occurrence: None)
  Receive Date: 20090225
  Receipt Date: 20090218
  Transmission Date: 20090719
  Serious: Yes (Hospitalization)
  Sender: FDA-Public Use
  Company Number: FR-BRISTOL-MYERS SQUIBB COMPANY-14476261

PATIENT
  Age: 67 Year
  Sex: Female
  Weight: 78 kg

DRUGS (7)
  1. ABILIFY [Suspect]
     Indication: MANIA
     Dosage: PREVIOUSLY TAKEN IN IM FORM. DOSAGE WAS REDUCED TO 20 MG AND FINALLY WITHDRAWN.
     Route: 048
     Dates: start: 20081128, end: 20090114
  2. DEPAKOTE [Concomitant]
     Dosage: DEPAKOTE 500MG 2DF=2 TABS;REDUCED TO 1TAB THREE TIMES A DAILY ON 14JAN09.
     Route: 048
  3. HALDOL [Concomitant]
  4. CARDENSIEL [Concomitant]
     Dosage: TABLET
     Route: 048
  5. COVERSYL [Concomitant]
     Dosage: TABLET.
     Route: 048
  6. LIPANTHYL [Concomitant]
     Dosage: TABLET 1DF=145 UNITS NOT SPECIFIED
     Route: 048
  7. LEVOTHYROX [Concomitant]
     Dosage: TABLET
     Route: 048

REACTIONS (8)
  - ANOREXIA [None]
  - CHOLELITHIASIS [None]
  - DYSPEPSIA [None]
  - JAUNDICE [None]
  - NAUSEA [None]
  - THROMBOCYTOPENIA [None]
  - TRANSAMINASES INCREASED [None]
  - VOMITING [None]
